FAERS Safety Report 4378617-2 (Version None)
Quarter: 2004Q2

REPORT INFORMATION
  Report Type: 
  Country: None (occurrence: None)
  Receive Date: 20040610
  Receipt Date: 20040602
  Transmission Date: 20050107
  Serious: Yes (Life-Threatening, Hospitalization)
  Sender: FDA-Public Use
  Company Number: 04P-167-0262782-00

PATIENT
  Age: 31 Year
  Sex: Female
  Weight: 95 kg

DRUGS (5)
  1. MERIDIA [Suspect]
     Indication: WEIGHT ABNORMAL
     Dosage: 1 DOSAGE FORMS, 1 IN 1 D, PER ORAL
     Route: 048
     Dates: start: 20040518, end: 20040518
  2. MONTELUKAST [Concomitant]
  3. OMEPRAZOLE [Concomitant]
  4. FEXOFENADINE HCL [Concomitant]
  5. SYMBICORT [Concomitant]

REACTIONS (3)
  - ANAPHYLACTOID REACTION [None]
  - ASTHMA [None]
  - DISEASE RECURRENCE [None]
